FAERS Safety Report 6993089-7 (Version None)
Quarter: 2010Q3

REPORT INFORMATION
  Report Type: 
  Country: None (occurrence: None)
  Receive Date: 20100917
  Receipt Date: 20091214
  Transmission Date: 20110219
  Serious: Yes (Other)
  Sender: FDA-Public Use
  Company Number: US-ASTRAZENECA-2007UW14323

PATIENT
  Age: 626 Month
  Sex: Male
  Weight: 93.4 kg

DRUGS (9)
  1. SEROQUEL [Suspect]
     Indication: INSOMNIA
     Route: 048
     Dates: start: 19990101, end: 20071101
  2. SEROQUEL [Suspect]
     Indication: DEPRESSION
     Route: 048
     Dates: start: 19990101, end: 20071101
  3. SEROQUEL [Suspect]
     Route: 048
     Dates: start: 20050101, end: 20071101
  4. SEROQUEL [Suspect]
     Route: 048
     Dates: start: 20050101, end: 20071101
  5. ABILIFY [Concomitant]
     Dates: start: 20060222, end: 20060515
  6. ZOLOFT [Concomitant]
     Dates: start: 19990311, end: 19990806
  7. PROZAC [Concomitant]
     Dates: start: 19990801
  8. REMERON [Concomitant]
  9. TRAZODONE HCL [Concomitant]
     Dosage: 150MG-250MG
     Dates: start: 20070328

REACTIONS (5)
  - CARDIAC DISORDER [None]
  - CEREBROVASCULAR ACCIDENT [None]
  - HYPERGLYCAEMIA [None]
  - HYPERTENSION [None]
  - TYPE 2 DIABETES MELLITUS [None]
